FAERS Safety Report 13526516 (Version 1)
Quarter: 2017Q2

REPORT INFORMATION
  Report Type: Spontaneous
  Country: US (occurrence: US)
  Receive Date: 20170508
  Receipt Date: 20170508
  Transmission Date: 20170830
  Serious: Yes (Other)
  Sender: FDA-Public Use
  Company Number: None

PATIENT
  Age: 27 Year
  Sex: Female
  Weight: 40.5 kg

DRUGS (1)
  1. CREST 3D WHITE GLAMOROUS WHITE [Suspect]
     Active Substance: SODIUM FLUORIDE
     Indication: TOOTH DISCOLOURATION
     Dosage: OTHER ROUTE:BRUSHED?
     Dates: start: 20170501, end: 20170505

REACTIONS (3)
  - Oral pain [None]
  - Stomatitis [None]
  - Swelling face [None]

NARRATIVE: CASE EVENT DATE: 20170506
